FAERS Safety Report 26174709 (Version 1)
Quarter: 2025Q4

REPORT INFORMATION
  Report Type: Spontaneous
  Country: US (occurrence: None)
  Receive Date: 20251218
  Receipt Date: 20251218
  Transmission Date: 20260117
  Serious: Yes (Hospitalization)
  Sender: FDA-CTU
  Company Number: None

PATIENT
  Sex: Female

DRUGS (9)
  1. LENALIDOMIDE [Suspect]
     Active Substance: LENALIDOMIDE
     Indication: Myelodysplastic syndrome
     Dosage: OTHER QUANTITY : 1 DOSEAGE;?OTHER FREQUENCY : 28 DAYS CYCLE;?FREQ: TAKE 1 CAPSULE BY MOUTH DAILY FOR 21 DAYS QF A 28 DAY CYCLE. BEGIN TAKING QN DECEMBER 20, ?2025
     Route: 048
     Dates: start: 20250207
  2. ACETAMIN TAB 500MG [Concomitant]
  3. ALEVE TAB 220MG [Concomitant]
  4. ARANESP INJ 10MCG [Concomitant]
  5. ASPIRIN-81 CHW 81MG [Concomitant]
  6. CHOLESTYRAM POW 4GM LITE [Concomitant]
  7. KP VITAMIN D [Concomitant]
  8. LIDODERM DIS 5% PATCH [Concomitant]
  9. MULTIVITAMIN TAB ADLT 50+ [Concomitant]

REACTIONS (3)
  - Femur fracture [None]
  - Accident [None]
  - Cytopenia [None]
